FAERS Safety Report 4619245-0 (Version None)
Quarter: 2005Q2

REPORT INFORMATION
  Report Type: 
  Country: None (occurrence: None)
  Receive Date: 20050321
  Receipt Date: 20041005
  Transmission Date: 20051028
  Serious: Yes (Other)
  Sender: FDA-Public Use
  Company Number: 2004-10-0209

PATIENT
  Sex: Female
  Weight: 58 kg

DRUGS (2)
  1. PEG-INTRON [Suspect]
     Dosage: SUBCUTANEOUS
     Route: 058
     Dates: start: 20040701
  2. RIBAVIRIN [Suspect]
     Dosage: ORAL
     Route: 048
     Dates: start: 20040701

REACTIONS (4)
  - ANGER [None]
  - CHILLS [None]
  - PAIN [None]
  - WEIGHT DECREASED [None]
